FAERS Safety Report 10551267 (Version 2)
Quarter: 2014Q4

REPORT INFORMATION
  Report Type: Report from Study
  Country: US (occurrence: US)
  Receive Date: 20141029
  Receipt Date: 20141029
  Transmission Date: 20150529
  Serious: Yes (Hospitalization, Other)
  Sender: FDA-Public Use
  Company Number: US-ABBVIE-14K-163-1283669-00

PATIENT
  Age: 70 Year
  Sex: Female

DRUGS (5)
  1. HUMIRA [Suspect]
     Active Substance: ADALIMUMAB
     Route: 065
     Dates: start: 2014, end: 20140928
  2. HUMIRA [Suspect]
     Active Substance: ADALIMUMAB
     Route: 065
     Dates: start: 20141012
  3. HUMIRA [Suspect]
     Active Substance: ADALIMUMAB
     Indication: RHEUMATOID ARTHRITIS
     Route: 065
     Dates: start: 201403, end: 20140804
  4. BLOOD PRESSURE MEDICATION [Concomitant]
     Active Substance: UNSPECIFIED INGREDIENT
     Indication: BLOOD PRESSURE
  5. UNKNOWN MEDICATION [Concomitant]
     Active Substance: UNSPECIFIED INGREDIENT
     Indication: PRODUCT USED FOR UNKNOWN INDICATION

REACTIONS (7)
  - Neck surgery [Not Recovered/Not Resolved]
  - Surgery [Not Recovered/Not Resolved]
  - Neck pain [Unknown]
  - Paraesthesia [Unknown]
  - Back pain [Unknown]
  - Pain in extremity [Unknown]
  - Intervertebral disc protrusion [Recovered/Resolved]

NARRATIVE: CASE EVENT DATE: 20140811
